FAERS Safety Report 21571414 (Version 1)
Quarter: 2022Q4

REPORT INFORMATION
  Report Type: Spontaneous
  Country: US (occurrence: None)
  Receive Date: 20221107
  Receipt Date: 20221107
  Transmission Date: 20230113
  Serious: Yes (Death)
  Sender: FDA-Public Use
  Company Number: None

PATIENT
  Sex: Female

DRUGS (1)
  1. PROCRIT [Suspect]
     Active Substance: ERYTHROPOIETIN
     Indication: Diabetes mellitus
     Dosage: OTHER STRENGTH : 10,000 U/ML;?OTHER QUANTITY : 10000 UNIT/ML;?FREQUENCY : AS DIRECTED;?
     Dates: start: 20220714

REACTIONS (1)
  - Death [None]
